FAERS Safety Report 15862348 (Version 1)
Quarter: 2019Q1

REPORT INFORMATION
  Report Type: Spontaneous
  Country: JP (occurrence: JP)
  Receive Date: 20190124
  Receipt Date: 20190124
  Transmission Date: 20190417
  Serious: Yes (Hospitalization, Other)
  Sender: FDA-Public Use
  Company Number: JP-MYLANLABS-2019M1005586

PATIENT
  Age: 84 Year
  Sex: Male

DRUGS (2)
  1. SUVOREXANT. [Interacting]
     Active Substance: SUVOREXANT
     Indication: INSOMNIA
     Dosage: AT BEDTIME
     Route: 065
  2. QUETIAPINE. [Suspect]
     Active Substance: QUETIAPINE
     Indication: INSOMNIA
     Route: 065

REACTIONS (2)
  - Drug interaction [Recovered/Resolved]
  - Delirium [Recovered/Resolved]
